FAERS Safety Report 18162119 (Version 1)
Quarter: 2020Q3

REPORT INFORMATION
  Report Type: Spontaneous
  Country: US (occurrence: US)
  Receive Date: 20200817
  Receipt Date: 20200817
  Transmission Date: 20201103
  Serious: Yes (Hospitalization)
  Sender: FDA-Public Use
  Company Number: None

PATIENT
  Age: 69 Year
  Sex: Female
  Weight: 51.3 kg

DRUGS (3)
  1. AXITINIB [Suspect]
     Active Substance: AXITINIB
     Indication: METASTASES TO LUNG
     Route: 048
     Dates: start: 20200219
  2. KEYTRUDA [Concomitant]
     Active Substance: PEMBROLIZUMAB
  3. AXITINIB [Suspect]
     Active Substance: AXITINIB
     Indication: RENAL CELL CARCINOMA
     Route: 048
     Dates: start: 20200219

REACTIONS (3)
  - Melaena [None]
  - Haemoglobin decreased [None]
  - Gastrointestinal angiodysplasia [None]

NARRATIVE: CASE EVENT DATE: 20200812
